FAERS Safety Report 6240373-0 (Version None)
Quarter: 2009Q2

REPORT INFORMATION
  Report Type: 
  Country: None (occurrence: None)
  Receive Date: 20090623
  Receipt Date: 20080702
  Transmission Date: 20091009
  Serious: No
  Sender: FDA-Public Use
  Company Number: US-ASTRAZENECA-2008UW13314

PATIENT
  Age: 66 Year
  Sex: Female
  Weight: 47.2 kg

DRUGS (3)
  1. PULMICORT-100 [Suspect]
     Indication: EMPHYSEMA
     Route: 055
     Dates: start: 20050101
  2. ALBUTEROL [Concomitant]
     Dosage: 2.5 MG/3ML
  3. IPRATROPIUM BROMIDE [Concomitant]
     Route: 055

REACTIONS (2)
  - RASH MACULAR [None]
  - SKIN HAEMORRHAGE [None]
